FAERS Safety Report 16305884 (Version 1)
Quarter: 2019Q2

REPORT INFORMATION
  Report Type: Spontaneous
  Country: US (occurrence: US)
  Receive Date: 20190512
  Receipt Date: 20190512
  Transmission Date: 20190711
  Serious: Yes (Disabling)
  Sender: FDA-Public Use
  Company Number: None

PATIENT
  Age: 17 Year
  Sex: Male
  Weight: 58.5 kg

DRUGS (4)
  1. XTRAC [Concomitant]
  2. AZELAIC ACID. [Suspect]
     Active Substance: AZELAIC ACID
     Indication: ACNE
     Dosage: ?          QUANTITY:3 OUNCE(S);?
     Route: 061
     Dates: start: 20171129, end: 20180518
  3. TACROLIMUS. [Concomitant]
     Active Substance: TACROLIMUS
  4. HELIOCARE [Concomitant]

REACTIONS (1)
  - Vitiligo [None]

NARRATIVE: CASE EVENT DATE: 20180316
